FAERS Safety Report 24438734 (Version 2)
Quarter: 2024Q4

REPORT INFORMATION
  Report Type: Spontaneous
  Country: US (occurrence: US)
  Receive Date: 20241015
  Receipt Date: 20241115
  Transmission Date: 20250114
  Serious: Yes (Death, Hospitalization)
  Sender: TEVA
  Company Number: US-TEVA-VS-3253358

PATIENT
  Age: 38 Year
  Sex: Male

DRUGS (3)
  1. FENTANYL [Suspect]
     Active Substance: FENTANYL
     Indication: Analgesic therapy
     Route: 065
  2. NALOXONE HYDROCHLORIDE [Suspect]
     Active Substance: NALOXONE HYDROCHLORIDE
     Indication: Substance abuse
     Route: 065
  3. PROPOFOL [Concomitant]
     Active Substance: PROPOFOL
     Indication: Sedation
     Route: 065

REACTIONS (3)
  - Serotonin syndrome [Fatal]
  - Cardiac arrest [Fatal]
  - Drug ineffective [Fatal]
